FAERS Safety Report 15611989 (Version 1)
Quarter: 2018Q4

REPORT INFORMATION
  Report Type: Spontaneous
  Country: US (occurrence: US)
  Receive Date: 20181113
  Receipt Date: 20181113
  Transmission Date: 20190205
  Serious: Yes (Other)
  Sender: FDA-Public Use
  Company Number: US-GLAXOSMITHKLINE-US2018GSK204554

PATIENT
  Sex: Female

DRUGS (5)
  1. BUPROPION. [Suspect]
     Active Substance: BUPROPION
     Indication: MUSCULOSKELETAL PAIN
  2. PREMARIN [Concomitant]
     Active Substance: ESTROGENS, CONJUGATED
     Dosage: 0.65/30 CREAM
  3. SKELAXIN [Concomitant]
     Active Substance: METAXALONE
     Dosage: 800 MG
  4. BUPROPION. [Suspect]
     Active Substance: BUPROPION
     Indication: DEPRESSION
     Dosage: 300 MG, 1D
     Route: 048
  5. LYRICA [Concomitant]
     Active Substance: PREGABALIN
     Dosage: 100 MG

REACTIONS (7)
  - Pelvic fracture [Not Recovered/Not Resolved]
  - Oxygen saturation decreased [Unknown]
  - Spinal disorder [Unknown]
  - Asthenia [Unknown]
  - Impaired driving ability [Not Recovered/Not Resolved]
  - Dizziness [Unknown]
  - Intervertebral disc protrusion [Unknown]
